FAERS Safety Report 18247532 (Version 1)
Quarter: 2020Q3

REPORT INFORMATION
  Report Type: Spontaneous
  Country: FR (occurrence: FR)
  Receive Date: 20200909
  Receipt Date: 20200909
  Transmission Date: 20201103
  Serious: Yes (Death, Hospitalization, Other)
  Sender: FDA-Public Use
  Company Number: FR-TEVA-2020-FR-1824285

PATIENT
  Age: 68 Year
  Sex: Male
  Weight: 89.8 kg

DRUGS (16)
  1. PRIMPERAN [Concomitant]
     Active Substance: METOCLOPRAMIDE HYDROCHLORIDE
  2. METHOTREXATE. [Concomitant]
     Active Substance: METHOTREXATE
     Indication: BLADDER CANCER
     Dates: start: 20150514, end: 20150806
  3. SMECTA [Concomitant]
     Active Substance: MONTMORILLONITE
  4. DOXORUBICINE (CHLORHYDRATE DE) [Suspect]
     Active Substance: DOXORUBICIN
     Indication: BLADDER CANCER
     Route: 042
     Dates: start: 20150514, end: 20150806
  5. DIFFU K [Concomitant]
     Active Substance: POTASSIUM CHLORIDE
  6. LOVENOX [Concomitant]
     Active Substance: ENOXAPARIN SODIUM
  7. VELBE 10 MG, POUDRE POUR SOLUTION INJECTABLE I.V. [Suspect]
     Active Substance: VINBLASTINE SULFATE
     Indication: BLADDER CANCER
     Route: 042
     Dates: start: 20150514, end: 20150806
  8. INIPOMP [Concomitant]
     Active Substance: PANTOPRAZOLE SODIUM
  9. IMODIUM [Concomitant]
     Active Substance: LOPERAMIDE HYDROCHLORIDE
  10. DANTRIUM [Concomitant]
     Active Substance: DANTROLENE SODIUM
  11. ANAFRANIL [Concomitant]
     Active Substance: CLOMIPRAMINE HYDROCHLORIDE
  12. CISPLATINE ACCORD [Suspect]
     Active Substance: CISPLATIN
     Indication: BLADDER CANCER
     Route: 042
     Dates: start: 20150514, end: 20150806
  13. LYRICA [Concomitant]
     Active Substance: PREGABALIN
  14. MECIR [Concomitant]
     Active Substance: TAMSULOSIN HYDROCHLORIDE
  15. GLICLAZIDE [Concomitant]
     Active Substance: GLICLAZIDE
  16. KARDEGIC [Concomitant]
     Active Substance: ASPIRIN DL-LYSINE

REACTIONS (1)
  - Congestive cardiomyopathy [Not Recovered/Not Resolved]

NARRATIVE: CASE EVENT DATE: 201510
